FAERS Safety Report 5619900-X (Version None)
Quarter: 2008Q1

REPORT INFORMATION
  Report Type: 
  Country: None (occurrence: None)
  Receive Date: 20080208
  Receipt Date: 20070822
  Transmission Date: 20080703
  Serious: No
  Sender: FDA-Public Use
  Company Number: US-ABBOTT-07P-163-0378594-00

PATIENT
  Sex: Female
  Weight: 63.56 kg

DRUGS (2)
  1. VICODIN [Suspect]
     Indication: NEURALGIA
     Route: 048
     Dates: start: 20050301, end: 20050301
  2. BUFFERIN [Concomitant]
     Indication: NEURALGIA
     Route: 048

REACTIONS (2)
  - DIZZINESS [None]
  - DRUG INEFFECTIVE [None]
